FAERS Safety Report 8006477-7 (Version None)
Quarter: 2011Q4

REPORT INFORMATION
  Report Type: 
  Country: None (occurrence: None)
  Receive Date: 20111226
  Receipt Date: 20111213
  Transmission Date: 20120403
  Serious: Yes (Other)
  Sender: FDA-Public Use
  Company Number: PHEH2011US010939

PATIENT
  Sex: Female
  Weight: 60 kg

DRUGS (8)
  1. EXFORGE [Suspect]
     Dosage: 1 DF, QD
  2. GLIPIZIDE [Concomitant]
     Indication: DIABETES MELLITUS
     Dosage: 5 MG, ( TWO PER DAY)
  3. MULTAQ [Concomitant]
     Indication: PERIPHERAL ARTERIAL OCCLUSIVE DISEASE
     Dosage: 400 MG, (TWO PER DAY)
     Route: 048
     Dates: start: 20100609
  4. CARDIZEM CD [Concomitant]
     Indication: TACHYCARDIA
     Dosage: 180 MG, ONE PER DAY
     Route: 048
     Dates: start: 20100528
  5. CALCIUM W/VITAMIN D NOS [Concomitant]
  6. AMLODIPINE W/BENAZEPRIL [Concomitant]
     Indication: HYPERTENSION
     Dosage: 1 DF (5/20 MG), QD
     Route: 048
     Dates: start: 20081020
  7. CHEMOTHERAPEUTICS NOS [Suspect]
  8. MULTI-VITAMINS [Concomitant]

REACTIONS (4)
  - NEOPLASM MALIGNANT [None]
  - PHARYNGEAL OEDEMA [None]
  - DYSPHAGIA [None]
  - METASTASES TO BONE [None]
